FAERS Safety Report 9127274 (Version 1)
Quarter: 2013Q1

REPORT INFORMATION
  Report Type: Spontaneous
  Country: US (occurrence: US)
  Receive Date: 20130228
  Receipt Date: 20130228
  Transmission Date: 20140127
  Serious: No
  Sender: FDA-Public Use
  Company Number: US-GLAXOSMITHKLINE-A0965702A

PATIENT
  Age: 65 Year
  Sex: Female

DRUGS (4)
  1. LAMICTAL [Suspect]
     Indication: HERPES ZOSTER
     Dosage: 200MG PER DAY
     Route: 048
     Dates: start: 20120109
  2. PROMACTA [Concomitant]
  3. DIABETES MEDICATION [Concomitant]
  4. CHOLESTEROL REDUCING AGENT [Concomitant]

REACTIONS (2)
  - Off label use [Unknown]
  - Drug ineffective [Unknown]
